FAERS Safety Report 17060894 (Version 3)
Quarter: 2019Q4

REPORT INFORMATION
  Report Type: Spontaneous
  Country: AU (occurrence: AU)
  Receive Date: 20191121
  Receipt Date: 20191128
  Transmission Date: 20200122
  Serious: Yes (Death, Other)
  Sender: FDA-Public Use
  Company Number: NVSC2019AU042723

PATIENT
  Sex: Female

DRUGS (2)
  1. DEXAMETHASONE. [Suspect]
     Active Substance: DEXAMETHASONE
     Indication: HAEMOPHAGOCYTIC LYMPHOHISTIOCYTOSIS
     Dosage: 10 MG/M2, QD
     Route: 065
  2. ETOPOSIDE. [Suspect]
     Active Substance: ETOPOSIDE
     Indication: HAEMOPHAGOCYTIC LYMPHOHISTIOCYTOSIS
     Dosage: 150 MG/M2, QW2
     Route: 065

REACTIONS (11)
  - Platelet count decreased [Unknown]
  - Bacterial sepsis [Unknown]
  - Serum ferritin increased [Unknown]
  - Pyrexia [Fatal]
  - Sepsis [Fatal]
  - Organ failure [Fatal]
  - Mucosal inflammation [Unknown]
  - Therapy non-responder [Unknown]
  - Pancytopenia [Unknown]
  - Haemophagocytic lymphohistiocytosis [Fatal]
  - Hepatosplenomegaly [Unknown]
